FAERS Safety Report 7719420-2 (Version None)
Quarter: 2011Q3

REPORT INFORMATION
  Report Type: 
  Country: None (occurrence: None)
  Receive Date: 20110830
  Receipt Date: 20110818
  Transmission Date: 20111222
  Serious: Yes (Other)
  Sender: FDA-Public Use
  Company Number: PHHY2011GB74852

PATIENT
  Age: 69 Year
  Sex: Female

DRUGS (2)
  1. LETROZOLE [Concomitant]
     Indication: BREAST CANCER
     Dosage: UNK
  2. ZOLEDRONIC ACID [Suspect]
     Indication: PROPHYLAXIS

REACTIONS (6)
  - CORNEAL EPITHELIAL MICROCYSTS [None]
  - CORNEAL OEDEMA [None]
  - INTRAOCULAR PRESSURE INCREASED [None]
  - IRIDOCYCLITIS [None]
  - BLINDNESS [None]
  - EYE PAIN [None]
